FAERS Safety Report 9889390 (Version 2)
Quarter: 2014Q1

REPORT INFORMATION
  Report Type: Report from Study
  Country: US (occurrence: US)
  Receive Date: 20140211
  Receipt Date: 20140307
  Transmission Date: 20141002
  Serious: Yes (Other)
  Sender: FDA-Public Use
  Company Number: US-MYLANLABS-2014S1002590

PATIENT
  Sex: Female
  Weight: 129.73 kg

DRUGS (1)
  1. AMNESTEEM CAPSULES [Suspect]

REACTIONS (2)
  - Cholelithiasis [Not Recovered/Not Resolved]
  - Haemangioma of liver [Not Recovered/Not Resolved]
